FAERS Safety Report 5179425-5 (Version None)
Quarter: 2006Q4

REPORT INFORMATION
  Report Type: 
  Country: None (occurrence: None)
  Receive Date: 20061211
  Receipt Date: 20061124
  Transmission Date: 20070319
  Serious: Yes (Hospitalization, Disabling)
  Sender: FDA-Public Use
  Company Number: URSO-2006-051

PATIENT
  Age: 59 Year
  Sex: Male

DRUGS (9)
  1. URSO (URSODEOXYCHOLIC ACID) [Suspect]
     Dosage: PO
     Route: 048
  2. TAKEPRON [Suspect]
     Indication: GASTRIC ULCER
     Dosage: 15 MG TABS DISPERSIBLE
     Dates: start: 20060601, end: 20060814
  3. TAKEPRON [Suspect]
     Indication: HELICOBACTER INFECTION
     Dosage: 15 MG TABS DISPERSIBLE
     Dates: start: 20060601, end: 20060814
  4. TAKEPRON [Suspect]
     Indication: GASTRIC ULCER
     Dosage: 15 MG TABS DISPERSIBLE
     Dates: start: 20060815, end: 20061023
  5. TAKEPRON [Suspect]
     Indication: HELICOBACTER INFECTION
     Dosage: 15 MG TABS DISPERSIBLE
     Dates: start: 20060815, end: 20061023
  6. PRAVASTATIN SODIUM [Suspect]
  7. BUFFERIN [Suspect]
  8. NIKORANMART (NICORANDIL) [Suspect]
  9. CHINESE MEDICINES (TRADITIONAL CHINESE MEDICINE) [Suspect]

REACTIONS (3)
  - ALANINE AMINOTRANSFERASE INCREASED [None]
  - ASPARTATE AMINOTRANSFERASE INCREASED [None]
  - HEPATIC FUNCTION ABNORMAL [None]
